FAERS Safety Report 7964745-9 (Version None)
Quarter: 2011Q4

REPORT INFORMATION
  Report Type: 
  Country: None (occurrence: None)
  Receive Date: 20111208
  Receipt Date: 20111128
  Transmission Date: 20120403
  Serious: Yes (Other)
  Sender: FDA-Public Use
  Company Number: US-ELI_LILLY_AND_COMPANY-US201112000216

PATIENT
  Age: 30 Year
  Sex: Male

DRUGS (4)
  1. STRATTERA [Suspect]
     Dosage: 40 MG, UNK
  2. COCAINE [Concomitant]
  3. STRATTERA [Suspect]
     Indication: ATTENTION DEFICIT/HYPERACTIVITY DISORDER
     Dosage: 25 MG, UNK
  4. STRATTERA [Suspect]
     Dosage: 60 MG, UNK

REACTIONS (3)
  - MUSCULAR WEAKNESS [None]
  - RHABDOMYOLYSIS [None]
  - DRUG ABUSE [None]
